FAERS Safety Report 5027578-1 (Version None)
Quarter: 2006Q2

REPORT INFORMATION
  Report Type: 
  Country: None (occurrence: None)
  Receive Date: 20060616
  Receipt Date: 20060608
  Transmission Date: 20061013
  Serious: Yes (Hospitalization, Other)
  Sender: FDA-Public Use
  Company Number: PHBS2006FR08512

PATIENT
  Age: 82 Year
  Sex: Male

DRUGS (1)
  1. CARTEOLOL HCL [Suspect]

REACTIONS (14)
  - ATRIOVENTRICULAR BLOCK [None]
  - BLOOD CREATININE INCREASED [None]
  - BLOOD CULTURE POSITIVE [None]
  - BLOOD POTASSIUM INCREASED [None]
  - BLOOD SODIUM DECREASED [None]
  - BRADYCARDIA [None]
  - DIARRHOEA [None]
  - DISORIENTATION [None]
  - ELECTROCARDIOGRAM QRS COMPLEX PROLONGED [None]
  - ESCHERICHIA INFECTION [None]
  - HYPOTHERMIA [None]
  - METABOLIC ACIDOSIS [None]
  - SINOATRIAL BLOCK [None]
  - SYNCOPE [None]
